FAERS Safety Report 8107148-9 (Version None)
Quarter: 2012Q1

REPORT INFORMATION
  Report Type: 
  Country: None (occurrence: None)
  Receive Date: 20120202
  Receipt Date: 20120126
  Transmission Date: 20120608
  Serious: Yes (Hospitalization, Other)
  Sender: FDA-Public Use
  Company Number: FR-PFIZER INC-2010020447

PATIENT
  Age: 71 Year
  Sex: Male

DRUGS (10)
  1. ATORVASTATIN [Suspect]
     Dosage: UNK
     Route: 048
     Dates: end: 20100125
  2. RAMIPRIL [Suspect]
     Dosage: 2.5 MG, UNK
     Route: 048
     Dates: end: 20100125
  3. GLUCOPHAGE [Suspect]
     Dosage: 850 MG, 2X/DAY
     Route: 048
     Dates: end: 20100125
  4. VISIPAQUE [Suspect]
     Indication: COMPUTERISED TOMOGRAM
     Dosage: UNK
     Dates: start: 20100119
  5. ISOPTIN [Concomitant]
     Dosage: 40 MG, UNK
  6. PLAVIX [Concomitant]
     Dosage: 75 MG, UNK
  7. BISOPROLOL FUMARATE [Concomitant]
     Dosage: UNK
  8. LASIX [Suspect]
     Dosage: 60 MG, UNK
     Route: 048
     Dates: end: 20100125
  9. PREVISCAN [Concomitant]
     Dosage: UNK
  10. EXELON [Concomitant]
     Dosage: UNK

REACTIONS (7)
  - HYPERKALAEMIA [None]
  - ANAEMIA MACROCYTIC [None]
  - ABDOMINAL PAIN [None]
  - LACTIC ACIDOSIS [None]
  - RENAL FAILURE ACUTE [None]
  - DIARRHOEA [None]
  - CONFUSIONAL STATE [None]
